FAERS Safety Report 8354691-3 (Version None)
Quarter: 2012Q2

REPORT INFORMATION
  Report Type: 
  Country: None (occurrence: None)
  Receive Date: 20120511
  Receipt Date: 20120508
  Transmission Date: 20120825
  Serious: Yes (Death, Life-Threatening, Hospitalization, Other)
  Sender: FDA-Public Use
  Company Number: DE-JNJFOC-20120100352

PATIENT
  Sex: Female
  Weight: 120 kg

DRUGS (6)
  1. FUROSEMIDE [Concomitant]
     Dates: start: 20111226
  2. SIMVASTATIN [Concomitant]
  3. LEVOTHYROXINE SODIUM [Concomitant]
  4. XARELTO [Suspect]
     Indication: ATRIAL FIBRILLATION
     Route: 048
     Dates: start: 20111223, end: 20111225
  5. SPIRONOLACTONE [Concomitant]
  6. BISOPROLOL FUMARATE [Concomitant]

REACTIONS (6)
  - HAEMATURIA [None]
  - HAEMOGLOBIN DECREASED [None]
  - VOMITING [None]
  - HEADACHE [None]
  - BLADDER TAMPONADE [None]
  - DEATH [None]
